FAERS Safety Report 15332937 (Version 1)
Quarter: 2018Q3

REPORT INFORMATION
  Report Type: Spontaneous
  Country: SE (occurrence: SE)
  Receive Date: 20180830
  Receipt Date: 20180830
  Transmission Date: 20181010
  Serious: Yes (Hospitalization)
  Sender: FDA-Public Use
  Company Number: SE-TEVA-2018-SE-950071

PATIENT
  Age: 69 Year
  Sex: Male

DRUGS (11)
  1. MIRTAZAPIN [Concomitant]
     Active Substance: MIRTAZAPINE
  2. ENALAPRIL [Suspect]
     Active Substance: ENALAPRIL
     Route: 065
     Dates: end: 20180601
  3. THERALEN [Concomitant]
     Active Substance: TRIMEPRAZINE
  4. ATARAX [Concomitant]
     Active Substance: HYDROXYZINE HYDROCHLORIDE
  5. ATORBIR [Concomitant]
     Active Substance: ATORVASTATIN
  6. ALFUZOSIN [Concomitant]
     Active Substance: ALFUZOSIN
  7. HYDROKORT TIAZID [Concomitant]
  8. KEPPRA [Concomitant]
     Active Substance: LEVETIRACETAM
  9. ORALOVITE [Concomitant]
     Active Substance: ASCORBIC ACID\NIACINAMIDE\PYRIDOXINE\RIBOFLAVIN\THIAMINE
  10. ACETYLSALICYLSYRA [Concomitant]
  11. ALVEDON [Concomitant]
     Active Substance: ACETAMINOPHEN

REACTIONS (2)
  - Swollen tongue [Recovered/Resolved]
  - Angioedema [Recovered/Resolved]

NARRATIVE: CASE EVENT DATE: 20180601
